FAERS Safety Report 19284386 (Version 2)
Quarter: 2021Q2

REPORT INFORMATION
  Report Type: Spontaneous
  Country: DE (occurrence: DE)
  Receive Date: 20210521
  Receipt Date: 20210527
  Transmission Date: 20210717
  Serious: Yes (Other)
  Sender: FDA-Public Use
  Company Number: DE-BAYER-2021-143562

PATIENT
  Age: 79 Year
  Sex: Male

DRUGS (1)
  1. LEVITRA [Suspect]
     Active Substance: VARDENAFIL HYDROCHLORIDE
     Dosage: 10 MG, Q2WK
     Dates: start: 2009, end: 2017

REACTIONS (3)
  - Neovascular age-related macular degeneration [None]
  - Dry age-related macular degeneration [None]
  - Visual impairment [None]

NARRATIVE: CASE EVENT DATE: 2019
